FAERS Safety Report 6574255-1 (Version None)
Quarter: 2010Q1

REPORT INFORMATION
  Report Type: 
  Country: None (occurrence: None)
  Receive Date: 20100208
  Receipt Date: 20100129
  Transmission Date: 20100710
  Serious: Yes (Hospitalization, Other)
  Sender: FDA-Public Use
  Company Number: US-ABBOTT-10P-163-0623118-00

PATIENT
  Age: 50 Year
  Sex: Female
  Weight: 124.85 kg

DRUGS (11)
  1. HUMIRA [Suspect]
     Indication: RHEUMATOID ARTHRITIS
     Dates: start: 20040116
  2. DOLOBID [Concomitant]
     Indication: PAIN
  3. AMLODIPIDINE [Concomitant]
     Indication: HYPERTENSION
  4. ANALAPRIL [Concomitant]
     Indication: HYPERTENSION
  5. FOLIC ACID [Concomitant]
     Indication: RHEUMATOID ARTHRITIS
  6. HYDROCHLOROTHIAZIDE [Concomitant]
     Indication: HYPERTENSION
  7. PREVACID [Concomitant]
     Indication: GASTROOESOPHAGEAL REFLUX DISEASE
  8. LORAZEPAM [Concomitant]
     Indication: ANXIETY
  9. METHOTREXATE [Concomitant]
     Indication: RHEUMATOID ARTHRITIS
  10. ZOLOFT [Concomitant]
     Indication: DEPRESSION
  11. TRAMADOL [Concomitant]
     Indication: PAIN

REACTIONS (8)
  - ACUTE MYOCARDIAL INFARCTION [None]
  - ARTERIOSPASM CORONARY [None]
  - CARDIOMEGALY [None]
  - CHEST DISCOMFORT [None]
  - CHEST PAIN [None]
  - JOINT SWELLING [None]
  - MEDICATION ERROR [None]
  - RHEUMATOID ARTHRITIS [None]
